FAERS Safety Report 4333690-2 (Version None)
Quarter: 2004Q2

REPORT INFORMATION
  Report Type: 
  Country: None (occurrence: None)
  Receive Date: 20040402
  Receipt Date: 20040302
  Transmission Date: 20050107
  Serious: Yes (Life-Threatening, Hospitalization, Other)
  Sender: FDA-Public Use
  Company Number: HQWYE530011DEC03

PATIENT
  Age: 56 Year
  Sex: Male
  Weight: 85.35 kg

DRUGS (9)
  1. RAPAMUNE [Suspect]
     Indication: PROPHYLAXIS AGAINST TRANSPLANT REJECTION
     Dosage: 3 MG 1X PER 1 DAY, ORAL
     Route: 048
     Dates: start: 19991204
  2. MULTIVITAMINS (ASCORBIC ACID/ERGOCALCIFEROL/FOLIC ACID/NICOTINAMIDE/PA [Concomitant]
  3. PEPCID [Concomitant]
  4. EXCEDRIN (ACETYLSALICYLIC ACID/CAFFEINE/PARACETAMOL/SALICYLAMIDE) [Concomitant]
  5. LIPITOR [Concomitant]
  6. FOLATE SODIUM (FOLATE SODIUM) [Concomitant]
  7. VITAMIN C (ASCORBIC ACID) [Concomitant]
  8. VITAMIN E [Concomitant]
  9. CALAN [Concomitant]

REACTIONS (12)
  - AORTIC DISSECTION [None]
  - BLOOD PRESSURE SYSTOLIC INCREASED [None]
  - CAROTID BRUIT [None]
  - DIZZINESS [None]
  - ELECTROCARDIOGRAM ABNORMAL [None]
  - HYPOAESTHESIA [None]
  - MUSCULOSKELETAL DISCOMFORT [None]
  - NECK PAIN [None]
  - OEDEMA PERIPHERAL [None]
  - PARAESTHESIA [None]
  - PULSE ABSENT [None]
  - VENTRICULAR HYPERTROPHY [None]
